FAERS Safety Report 8117838-X (Version None)
Quarter: 2012Q1

REPORT INFORMATION
  Report Type: 
  Country: None (occurrence: None)
  Receive Date: 20120131
  Receipt Date: 20120117
  Transmission Date: 20120608
  Serious: Yes (Other)
  Sender: FDA-Public Use
  Company Number: JP-2012-10095

PATIENT
  Age: 87 Year
  Sex: Female
  Weight: 53 kg

DRUGS (6)
  1. PREDNISOLONE (PRENISOLONE) [Concomitant]
  2. LANSOPRAZOLE [Concomitant]
  3. APRINIDINE HYDROCHLORIDE (APRINIDINE HYDROCHLORIDE) [Concomitant]
  4. SAMSCA [Suspect]
     Indication: FLUID RETENTION
     Dosage: 7.5 MG (MILLIGRAM(S), GRAM, ORAL
     Route: 048
     Dates: start: 20111214, end: 20111217
  5. REZALTAS COMBINATION (OLMESARTAN MEDOXOMIL_AZELNIDIPINE) [Concomitant]
  6. CARPERITIDE (CARPERITIDE) [Concomitant]

REACTIONS (2)
  - RENAL IMPAIRMENT [None]
  - BLOOD PRESSURE DECREASED [None]
